FAERS Safety Report 12701242 (Version 3)
Quarter: 2017Q3

REPORT INFORMATION
  Report Type: Report from Study
  Country: IN (occurrence: IN)
  Receive Date: 20160831
  Receipt Date: 20170823
  Transmission Date: 20171127
  Serious: Yes (Life-Threatening, Hospitalization)
  Sender: FDA-Public Use
  Company Number: IN-ROCHE-1818416

PATIENT
  Age: 46 Year
  Sex: Male

DRUGS (4)
  1. OMALIZUMAB. [Suspect]
     Active Substance: OMALIZUMAB
     Route: 058
     Dates: start: 20160818, end: 20160818
  2. OMALIZUMAB. [Suspect]
     Active Substance: OMALIZUMAB
     Route: 058
     Dates: start: 20160716
  3. OMALIZUMAB. [Suspect]
     Active Substance: OMALIZUMAB
     Route: 058
     Dates: start: 20160619
  4. OMALIZUMAB. [Suspect]
     Active Substance: OMALIZUMAB
     Indication: CHRONIC SPONTANEOUS URTICARIA
     Route: 058
     Dates: start: 20160523

REACTIONS (27)
  - Peripheral swelling [Recovered/Resolved]
  - Red cell distribution width decreased [Unknown]
  - Angioedema [Recovered/Resolved]
  - Rash generalised [Recovered/Resolved]
  - Dyspnoea [Recovered/Resolved]
  - Headache [Recovered/Resolved]
  - Hypotension [Recovered/Resolved]
  - Bilirubin conjugated increased [Unknown]
  - Lymphocyte count increased [Unknown]
  - Heart rate increased [Recovered/Resolved]
  - Red blood cell count increased [Unknown]
  - Blood calcium decreased [Unknown]
  - Blood sodium increased [Unknown]
  - Urticaria [Recovered/Resolved]
  - Cyanosis [Recovered/Resolved]
  - Myalgia [Recovered/Resolved]
  - Eosinophil count decreased [Unknown]
  - Blood magnesium decreased [Unknown]
  - Blood phosphorus decreased [Unknown]
  - Blood glucose increased [Unknown]
  - Protein total decreased [Unknown]
  - Pulse volume decreased [Recovered/Resolved]
  - Blood alkaline phosphatase decreased [Unknown]
  - Blood chloride increased [Unknown]
  - Chest pain [Recovered/Resolved]
  - Glucose urine present [Unknown]
  - White blood cell count decreased [Unknown]

NARRATIVE: CASE EVENT DATE: 20160818
